FAERS Safety Report 7407745-X (Version None)
Quarter: 2011Q2

REPORT INFORMATION
  Report Type: 
  Country: None (occurrence: None)
  Receive Date: 20110412
  Receipt Date: 20110103
  Transmission Date: 20111010
  Serious: Yes (Death)
  Sender: FDA-Public Use
  Company Number: US-BAYER-2011-002394

PATIENT
  Age: 34 Year
  Sex: Male

DRUGS (4)
  1. LOPERAMIDE [Suspect]
     Route: 048
  2. PARACETAMOL + DIPHENHYDRAMINE [Suspect]
     Route: 048
  3. DIPHENHYDRAMINE HYDROCHLORIDE [Suspect]
     Route: 048
  4. ETHANOL [Suspect]
     Route: 048

REACTIONS (1)
  - TOXICITY TO VARIOUS AGENTS [None]
